FAERS Safety Report 15745660 (Version 1)
Quarter: 2018Q4

REPORT INFORMATION
  Report Type: Spontaneous
  Country: UA (occurrence: UA)
  Receive Date: 20181220
  Receipt Date: 20181220
  Transmission Date: 20190205
  Serious: Yes (Other)
  Sender: FDA-Public Use
  Company Number: PHHY2018UA176774

PATIENT
  Age: 25 Year
  Sex: Female

DRUGS (4)
  1. METHOTREXATE. [Suspect]
     Active Substance: METHOTREXATE
     Indication: COGAN^S SYNDROME
     Dosage: 10 MG, QW
     Route: 065
  2. PREDNISOLONE. [Suspect]
     Active Substance: PREDNISOLONE
     Indication: COGAN^S SYNDROME
     Dosage: 60 MG, QD
     Route: 065
  3. INFLIXIMAB [Suspect]
     Active Substance: INFLIXIMAB
     Indication: COGAN^S SYNDROME
     Dosage: 5 MG/KG, THEN ON THE 2ND AND 6TH WEEKS AFTER THE FIRST INFUSION, THEN EVERY 8 WEEKS
     Route: 042
  4. PREDNISONE. [Suspect]
     Active Substance: PREDNISONE
     Indication: COGAN^S SYNDROME
     Dosage: 45 MG, QD
     Route: 065

REACTIONS (6)
  - Maternal exposure during pregnancy [Unknown]
  - Cogan^s syndrome [Unknown]
  - Disease progression [Unknown]
  - Deafness bilateral [Unknown]
  - Normal newborn [Unknown]
  - Product use in unapproved indication [Unknown]
